FAERS Safety Report 9925944 (Version 2)
Quarter: 2014Q1

REPORT INFORMATION
  Report Type: Spontaneous
  Country: US (occurrence: US)
  Receive Date: 20140226
  Receipt Date: 20140226
  Transmission Date: 20141002
  Serious: No
  Sender: FDA-Public Use
  Company Number: US-BRACCO-009188

PATIENT
  Sex: 0

DRUGS (1)
  1. ISOVUE 370 [Suspect]
     Indication: COMPUTERISED TOMOGRAM
     Dosage: LOT: 2J41074 EXP. DATE: 31-OCT-2015; LOT 2E95056: EXP. DATE: 31-MAY-2015
     Route: 042

REACTIONS (1)
  - Product physical issue [Unknown]
